FAERS Safety Report 7888570-2 (Version None)
Quarter: 2011Q4

REPORT INFORMATION
  Report Type: 
  Country: None (occurrence: None)
  Receive Date: 20111103
  Receipt Date: 20111101
  Transmission Date: 20120403
  Serious: No
  Sender: FDA-Public Use
  Company Number: US-PFIZER INC-2011267846

PATIENT
  Sex: Female
  Weight: 65.76 kg

DRUGS (12)
  1. FISH OIL [Concomitant]
     Dosage: 1200 MG, 3X/DAY
  2. ALBUTEROL [Concomitant]
     Indication: EMPHYSEMA
     Dosage: UNK
  3. NEXIUM [Concomitant]
     Dosage: UNK
  4. ADVAIR DISKUS 100/50 [Concomitant]
     Indication: BRONCHITIS
     Dosage: UNK
  5. SPIRIVA [Concomitant]
     Indication: EMPHYSEMA
     Dosage: UNK
  6. VITAMIN D [Concomitant]
     Dosage: UNK
  7. LIPITOR [Suspect]
     Indication: BLOOD CHOLESTEROL INCREASED
     Dosage: 10 MG, 1X/DAY
     Route: 048
     Dates: start: 20110726, end: 20110801
  8. LEVOTHYROXINE [Concomitant]
     Indication: HYPOTHYROIDISM
     Dosage: UNK
  9. ALENDRONATE SODIUM [Concomitant]
     Indication: OSTEOPOROSIS
     Dosage: UNK
  10. METFORMIN [Concomitant]
     Dosage: UNK
  11. EXFORGE [Concomitant]
     Indication: HYPERTENSION
     Dosage: UNK
  12. LORAZEPAM [Concomitant]
     Dosage: UNK

REACTIONS (1)
  - MUSCLE SPASMS [None]
